FAERS Safety Report 10361172 (Version 8)
Quarter: 2018Q2

REPORT INFORMATION
  Report Type: Report from Study
  Country: BR (occurrence: BR)
  Receive Date: 20140804
  Receipt Date: 20180510
  Transmission Date: 20180711
  Serious: Yes (Other)
  Sender: FDA-Public Use
  Company Number: PHHY2014BR074845

PATIENT
  Age: 80 Year
  Sex: Female
  Weight: 48 kg

DRUGS (8)
  1. ACLASTA [Suspect]
     Active Substance: ZOLEDRONIC ACID
     Dosage: 1 DF (5MG/100ML), Q12MO
     Route: 042
     Dates: start: 20130510
  2. VITAMIN E [Concomitant]
     Active Substance: .ALPHA.-TOCOPHEROL
     Indication: OSTEOPOROSIS
     Dosage: UNK UNK, BID
     Route: 048
  3. CALCIUM [Concomitant]
     Active Substance: CALCIUM
     Indication: OSTEOPOROSIS
     Dosage: 1 DF, QD
     Route: 065
  4. CHONDROITIN GLUCOSAMIN [Concomitant]
     Active Substance: CHONDROITIN SULFATE A\GLUCOSAMINE
     Indication: CHONDROPATHY
     Dosage: 1 DF, QD
     Route: 065
     Dates: start: 2009
  5. ACLASTA [Suspect]
     Active Substance: ZOLEDRONIC ACID
     Dosage: 1 DF (5MG/100ML), Q12MO
     Route: 042
     Dates: start: 201405, end: 201405
  6. ACLASTA [Suspect]
     Active Substance: ZOLEDRONIC ACID
     Dosage: 1 DF (5MG/100ML), Q12MO
     Route: 042
     Dates: start: 2012
  7. ACLASTA [Suspect]
     Active Substance: ZOLEDRONIC ACID
     Indication: OSTEOPOROSIS
     Dosage: 1 DF (5MG/100ML), Q12MO
     Route: 042
     Dates: start: 2011
  8. CALCIUM [Concomitant]
     Active Substance: CALCIUM
     Dosage: UNK UNK, BID
     Route: 048

REACTIONS (14)
  - Fear [Unknown]
  - Osteoarthritis [Not Recovered/Not Resolved]
  - Body height decreased [Unknown]
  - Concomitant disease progression [Not Recovered/Not Resolved]
  - Limb injury [Unknown]
  - Spinal disorder [Not Recovered/Not Resolved]
  - Bone density decreased [Unknown]
  - Foot deformity [Unknown]
  - General physical health deterioration [Unknown]
  - Spinal osteoarthritis [Not Recovered/Not Resolved]
  - Anxiety [Unknown]
  - Bursitis [Not Recovered/Not Resolved]
  - Bone disorder [Not Recovered/Not Resolved]
  - Drug ineffective [Not Recovered/Not Resolved]

NARRATIVE: CASE EVENT DATE: 201406
